FAERS Safety Report 6337852-4 (Version None)
Quarter: 2009Q3

REPORT INFORMATION
  Report Type: 
  Country: None (occurrence: None)
  Receive Date: 20090902
  Receipt Date: 20090824
  Transmission Date: 20100115
  Serious: Yes (Hospitalization, Disabling, Other)
  Sender: FDA-Public Use
  Company Number: B0577231A

PATIENT
  Sex: Male
  Weight: 63 kg

DRUGS (6)
  1. ARIXTRA [Suspect]
     Indication: THROMBOSIS PROPHYLAXIS
     Dosage: 1.5MG PER DAY
     Route: 058
     Dates: start: 20090523, end: 20090531
  2. PANSPORIN [Concomitant]
     Indication: INFECTION PROPHYLAXIS
     Dosage: 2G PER DAY
     Route: 042
     Dates: start: 20090521, end: 20090524
  3. FLOMOX [Concomitant]
     Indication: INFECTION PROPHYLAXIS
     Dosage: 300MG PER DAY
     Route: 048
     Dates: start: 20090525, end: 20090531
  4. LORCAM [Concomitant]
     Indication: ANALGESIA
     Dosage: 300MG PER DAY
     Route: 048
  5. MUCOSTA [Concomitant]
     Dosage: 300NG PER DAY
     Route: 048
  6. DASEN [Concomitant]
     Indication: SWELLING
     Dosage: 30MG PER DAY
     Route: 048

REACTIONS (3)
  - CEREBRAL HAEMORRHAGE [None]
  - FIBRIN DEGRADATION PRODUCTS INCREASED [None]
  - HEMIPLEGIA [None]
